FAERS Safety Report 9774653 (Version 1)
Quarter: 2013Q4

REPORT INFORMATION
  Report Type: Spontaneous
  Country: US (occurrence: None)
  Receive Date: 20131219
  Receipt Date: 20131219
  Transmission Date: 20140711
  Serious: Yes (Other)
  Sender: FDA-Public Use
  Company Number: None

PATIENT
  Age: 64 Year
  Sex: Male
  Weight: 89.8 kg

DRUGS (1)
  1. FOSPHENYTOIN [Suspect]
     Route: 042
     Dates: start: 20130917, end: 20130917

REACTIONS (5)
  - Thrombocytopenia [None]
  - Anaemia [None]
  - Pyrexia [None]
  - Rash [None]
  - Mental status changes [None]
